FAERS Safety Report 20895682 (Version 1)
Quarter: 2022Q2

REPORT INFORMATION
  Report Type: Spontaneous
  Country: US (occurrence: None)
  Receive Date: 20220529
  Receipt Date: 20220529
  Transmission Date: 20220721
  Serious: Yes (Other)
  Sender: FDA-Public Use
  Company Number: None

PATIENT
  Age: 32 Year
  Sex: Female
  Weight: 63 kg

DRUGS (7)
  1. ESCITALOPRAM OXALATE [Suspect]
     Active Substance: ESCITALOPRAM OXALATE
     Indication: Anxiety
     Route: 048
     Dates: start: 20201008, end: 20220513
  2. DIFFERIN [Concomitant]
     Active Substance: ADAPALENE
  3. PANOXYL [Concomitant]
     Active Substance: BENZOYL PEROXIDE
  4. Bp/clindamycin gel [Concomitant]
  5. One-aDay Women^s multivitamin [Concomitant]
  6. LORATADINE [Concomitant]
     Active Substance: LORATADINE
  7. Flutucasone [Concomitant]

REACTIONS (15)
  - Thyroid disorder [None]
  - Inflammation [None]
  - Immune-mediated adverse reaction [None]
  - Arthritis [None]
  - Muscle disorder [None]
  - Body temperature fluctuation [None]
  - Pain [None]
  - Blood pressure increased [None]
  - Fatigue [None]
  - Loss of personal independence in daily activities [None]
  - Insomnia [None]
  - Hyperarousal [None]
  - Blood alkaline phosphatase decreased [None]
  - Hunger [None]
  - Unevaluable event [None]

NARRATIVE: CASE EVENT DATE: 20220521
